FAERS Safety Report 9226503 (Version 1)
Quarter: 2013Q2

REPORT INFORMATION
  Report Type: Spontaneous
  Country: US (occurrence: US)
  Receive Date: 20130412
  Receipt Date: 20130412
  Transmission Date: 20140414
  Serious: Yes (Other)
  Sender: FDA-Public Use
  Company Number: US-JNJCP-30000155330

PATIENT
  Sex: Female

DRUGS (12)
  1. NTG ULTRA SHEER SUNBLOCK LOTION SPF55 USA NTUSL5US [Suspect]
     Indication: PROPHYLAXIS
     Route: 061
  2. NO DRUG NAME [Concomitant]
  3. NO DRUG NAME [Concomitant]
  4. NO DRUG NAME [Concomitant]
  5. NO DRUG NAME [Concomitant]
  6. NO DRUG NAME [Concomitant]
  7. NO DRUG NAME [Concomitant]
  8. NO DRUG NAME [Concomitant]
  9. NO DRUG NAME [Concomitant]
  10. NO DRUG NAME [Concomitant]
  11. NO DRUG NAME [Concomitant]
  12. NO DRUG NAME [Concomitant]

REACTIONS (5)
  - Application site swelling [Recovering/Resolving]
  - Application site urticaria [Not Recovered/Not Resolved]
  - Application site dryness [Not Recovered/Not Resolved]
  - Syncope [Recovered/Resolved]
  - Therapeutic product ineffective [None]
